FAERS Safety Report 8989700 (Version 2)
Quarter: 2013Q2

REPORT INFORMATION
  Report Type: Spontaneous
  Country: JP (occurrence: JP)
  Receive Date: 20121227
  Receipt Date: 20130507
  Transmission Date: 20140414
  Serious: Yes (Hospitalization)
  Sender: FDA-Public Use
  Company Number: JP-009507513-1212JPN010160

PATIENT
  Age: 77 Year
  Sex: Female
  Weight: 48 kg

DRUGS (11)
  1. JANUVIA TABLETS 50MG [Suspect]
     Indication: BLOOD GLUCOSE ABNORMAL
     Dosage: 50 MG, QD
     Route: 048
     Dates: start: 20110217, end: 20120903
  2. NOVORAPID [Concomitant]
     Indication: BLOOD GLUCOSE ABNORMAL
     Dosage: DAILY DOSAGE: 10 (UNDER1000UNIT)
     Route: 058
     Dates: start: 20110207
  3. ALEVIATIN [Concomitant]
     Indication: CONVULSION PROPHYLAXIS
     Dosage: 25 MG, TID
     Route: 048
  4. TEGRETOL [Concomitant]
     Indication: CONVULSION PROPHYLAXIS
     Dosage: 250 MG, TID
     Route: 048
  5. LASIX (FUROSEMIDE) [Concomitant]
     Indication: CARDIAC FAILURE
     Dosage: 40 MG, BID
     Route: 048
     Dates: start: 20100223
  6. MAGMITT [Concomitant]
     Indication: CONSTIPATION
     Dosage: 500 MG, BID
     Route: 048
     Dates: start: 20120620
  7. GASMOTIN [Concomitant]
     Dosage: 5 MG, TID
     Route: 048
  8. AMARYL [Concomitant]
     Indication: BLOOD GLUCOSE ABNORMAL
     Dosage: 1 MG, BID
     Route: 048
     Dates: start: 20100212
  9. NORVASC OD [Concomitant]
     Indication: BLOOD PRESSURE ABNORMAL
     Dosage: 2.5 MG, BID
     Route: 048
     Dates: start: 20120220
  10. DEPAS [Concomitant]
     Indication: CONVULSION PROPHYLAXIS
     Dosage: 0.5 MG, BID
     Route: 048
     Dates: start: 20120306
  11. DAI-KENCHU-TO [Concomitant]
     Indication: CONSTIPATION
     Dosage: 2.5 G, TID
     Route: 048
     Dates: start: 20101129

REACTIONS (2)
  - Ileus paralytic [Recovered/Resolved]
  - Pneumonia aspiration [Recovered/Resolved]
